FAERS Safety Report 13632963 (Version 4)
Quarter: 2017Q4

REPORT INFORMATION
  Report Type: Spontaneous
  Country: JP (occurrence: JP)
  Receive Date: 20170609
  Receipt Date: 20171112
  Transmission Date: 20180320
  Serious: Yes (Hospitalization)
  Sender: FDA-Public Use
  Company Number: JP-CONCORDIA PHARMACEUTICALS INC.-GSH201706-003355

PATIENT
  Age: 55 Year
  Sex: Female

DRUGS (7)
  1. ZETIA [Concomitant]
     Active Substance: EZETIMIBE
  2. HIBON [Concomitant]
     Active Substance: RIBOFLAVIN
  3. MAGNESIUM OXIDE. [Concomitant]
     Active Substance: MAGNESIUM OXIDE
  4. PREDONINE [Concomitant]
     Active Substance: PREDNISOLONE
  5. OPALMON [Concomitant]
     Active Substance: LIMAPROST
  6. IMURAN [Concomitant]
     Active Substance: AZATHIOPRINE
  7. PLAQUENIL [Suspect]
     Active Substance: HYDROXYCHLOROQUINE SULFATE
     Indication: SYSTEMIC LUPUS ERYTHEMATOSUS
     Route: 048
     Dates: start: 20170425, end: 20170518

REACTIONS (6)
  - Lymphocyte count decreased [Unknown]
  - Acute generalised exanthematous pustulosis [Recovered/Resolved]
  - Rash generalised [Unknown]
  - Lip swelling [Unknown]
  - Pruritus [Unknown]
  - Pyrexia [Unknown]

NARRATIVE: CASE EVENT DATE: 201705
